FAERS Safety Report 15762806 (Version 3)
Quarter: 2019Q1

REPORT INFORMATION
  Report Type: Spontaneous
  Country: BR (occurrence: BR)
  Receive Date: 20181226
  Receipt Date: 20190115
  Transmission Date: 20190417
  Serious: Yes (Hospitalization, Other)
  Sender: FDA-Public Use
  Company Number: BR-PFIZER INC-2018524193

PATIENT
  Age: 75 Year
  Sex: Female

DRUGS (1)
  1. LORAX//LORAZEPAM [Suspect]
     Active Substance: LORAZEPAM
     Dosage: 1.5 DF, DAILY (HALF A TABLET IN THE MORNING AND ONE AT NIGHT)

REACTIONS (6)
  - Feeling abnormal [Unknown]
  - Wrong technique in product usage process [Unknown]
  - Cerebrovascular accident [Unknown]
  - Apparent death [Unknown]
  - Drug dependence [Unknown]
  - Hypertension [Unknown]
